FAERS Safety Report 8386701-1 (Version None)
Quarter: 2012Q2

REPORT INFORMATION
  Report Type: 
  Country: None (occurrence: None)
  Receive Date: 20120523
  Receipt Date: 20120523
  Transmission Date: 20120825
  Serious: Yes (Life-Threatening, Other)
  Sender: FDA-Public Use
  Company Number: None

PATIENT
  Age: 49 Year
  Sex: Male
  Weight: 73.9363 kg

DRUGS (4)
  1. SEROQUEL [Concomitant]
  2. BUSPIRONE HCL [Suspect]
     Indication: GENERALISED ANXIETY DISORDER
     Dosage: 5MG FOR 4 DAYS, THEN 10MG DAILY PO
     Route: 048
     Dates: start: 20120515, end: 20120521
  3. ZOCOR [Concomitant]
  4. OMEPRAZOLE CPDR SR -PRILOSEC- [Concomitant]

REACTIONS (21)
  - HEADACHE [None]
  - APATHY [None]
  - MANIA [None]
  - PANIC ATTACK [None]
  - INITIAL INSOMNIA [None]
  - DEPRESSION [None]
  - DECREASED INTEREST [None]
  - CRYING [None]
  - NIGHT SWEATS [None]
  - ANXIETY [None]
  - PARANOIA [None]
  - TACHYPHRENIA [None]
  - MOOD ALTERED [None]
  - MUSCLE TWITCHING [None]
  - DECREASED APPETITE [None]
  - INAPPROPRIATE AFFECT [None]
  - NERVOUSNESS [None]
  - VOMITING [None]
  - FEAR [None]
  - AGITATION [None]
  - IMPAIRED WORK ABILITY [None]
